FAERS Safety Report 15298313 (Version 2)
Quarter: 2018Q4

REPORT INFORMATION
  Report Type: Spontaneous
  Country: US (occurrence: US)
  Receive Date: 20180820
  Receipt Date: 20181001
  Transmission Date: 20190204
  Serious: Yes (Hospitalization, Other)
  Sender: FDA-Public Use
  Company Number: US-DRREDDYS-USA/USA/18/0097362

PATIENT
  Age: 36 Year
  Sex: Male

DRUGS (3)
  1. CLINDAMYCIN. [Concomitant]
     Active Substance: CLINDAMYCIN
     Indication: CELLULITIS
     Route: 048
  2. INSULIN [Concomitant]
     Active Substance: INSULIN NOS
     Indication: DIABETIC KETOACIDOSIS
     Route: 042
  3. LEVOFLOXACIN TABLETS [Suspect]
     Active Substance: LEVOFLOXACIN
     Indication: CELLULITIS
     Dosage: ADMINISTERED DAYS 2-5
     Route: 048

REACTIONS (3)
  - Liver injury [Recovering/Resolving]
  - Mitral valve thickening [Recovering/Resolving]
  - Drug-induced liver injury [Recovering/Resolving]
